FAERS Safety Report 25459251 (Version 2)
Quarter: 2025Q3

REPORT INFORMATION
  Report Type: Spontaneous
  Country: CN (occurrence: CN)
  Receive Date: 20250620
  Receipt Date: 20250711
  Transmission Date: 20251020
  Serious: Yes (Life-Threatening, Other)
  Sender: GE HEALTHCARE
  Company Number: None

PATIENT
  Age: 55 Year
  Sex: Male
  Weight: 57 kg

DRUGS (1)
  1. OMNIPAQUE [Suspect]
     Active Substance: IOHEXOL
     Indication: Angiogram cerebral
     Route: 065
     Dates: start: 20250525, end: 20250525

REACTIONS (7)
  - Brain oedema [Recovering/Resolving]
  - Extensor plantar response [Recovering/Resolving]
  - Eye movement disorder [Recovering/Resolving]
  - Contrast encephalopathy [Recovering/Resolving]
  - Coma [Not Recovered/Not Resolved]
  - Seizure [Recovering/Resolving]
  - Aphasia [Recovering/Resolving]

NARRATIVE: CASE EVENT DATE: 20250525
